FAERS Safety Report 22644373 (Version 1)
Quarter: 2023Q2

REPORT INFORMATION
  Report Type: Report from Study
  Country: US (occurrence: US)
  Receive Date: 20230627
  Receipt Date: 20230627
  Transmission Date: 20230721
  Serious: Yes (Other)
  Sender: FDA-Public Use
  Company Number: US-GILEAD-2023-0633554

PATIENT
  Age: 38 Year
  Sex: Male

DRUGS (20)
  1. AZTREONAM LYSINE [Suspect]
     Active Substance: AZTREONAM LYSINE
     Indication: Chronic obstructive pulmonary disease
     Dosage: 75 MG
     Route: 065
     Dates: start: 20151125
  2. CALCIUM CARBONATE [Concomitant]
     Active Substance: CALCIUM CARBONATE
  3. VALPROIC ACID [Concomitant]
     Active Substance: VALPROIC ACID
  4. POTASSIUM [Concomitant]
     Active Substance: POTASSIUM
  5. SINGULAIR [Concomitant]
     Active Substance: MONTELUKAST SODIUM
  6. VITAMIN D NOS [Concomitant]
     Active Substance: VITAMIN D NOS
  7. FLOVENT [Concomitant]
     Active Substance: FLUTICASONE PROPIONATE
  8. POTASSIUM CHLORIDE [Concomitant]
     Active Substance: POTASSIUM CHLORIDE
  9. FLUTICA [FLUTICASONE FUROATE] [Concomitant]
  10. IPRATROPIUM [Concomitant]
     Active Substance: IPRATROPIUM
  11. FLUTICASONE [Concomitant]
     Active Substance: FLUTICASONE
  12. LEVOFLOXACIN [Concomitant]
     Active Substance: LEVOFLOXACIN
  13. FAMOTIDINE [Concomitant]
     Active Substance: FAMOTIDINE
  14. LEVOTHYROXINE [Concomitant]
     Active Substance: LEVOTHYROXINE
  15. TOPIRAMATE [Concomitant]
     Active Substance: TOPIRAMATE
  16. MONTELUKAST [Concomitant]
     Active Substance: MONTELUKAST SODIUM
  17. LORAZEPAM [Concomitant]
     Active Substance: LORAZEPAM
  18. GLYCOPYRROLATE [Concomitant]
     Active Substance: GLYCOPYRROLATE
  19. CETIRIZINE [Concomitant]
     Active Substance: CETIRIZINE HYDROCHLORIDE
  20. POLYETHYLENE GLYCOLS [Concomitant]
     Active Substance: POLYETHYLENE GLYCOLS

REACTIONS (2)
  - Pneumonia [Unknown]
  - Off label use [Unknown]
